FAERS Safety Report 4962374-2 (Version None)
Quarter: 2006Q1

REPORT INFORMATION
  Report Type: 
  Country: None (occurrence: None)
  Receive Date: 20060329
  Receipt Date: 20060318
  Transmission Date: 20060701
  Serious: Yes (Other)
  Sender: FDA-Public Use
  Company Number: 2006038588

PATIENT
  Age: 66 Year
  Sex: Female
  Weight: 81.6475 kg

DRUGS (3)
  1. INSPRA [Suspect]
     Indication: DIURETIC EFFECT
     Dosage: 25 MG (25 MG, DAILY, INTERVAL: EVERY DAY), ORAL
     Route: 048
  2. ZETIA [Concomitant]
  3. ACETYLSALICYLIC ACID SRT [Concomitant]

REACTIONS (6)
  - BODY HEIGHT DECREASED [None]
  - CARDIAC FAILURE CONGESTIVE [None]
  - DIABETES MELLITUS [None]
  - HYPERTENSION [None]
  - HYPOTHYROIDISM [None]
  - WEIGHT INCREASED [None]
